FAERS Safety Report 6856675-0 (Version None)
Quarter: 2010Q3

REPORT INFORMATION
  Report Type: 
  Country: None (occurrence: None)
  Receive Date: 20100719
  Receipt Date: 20100714
  Transmission Date: 20110219
  Serious: Yes (Other)
  Sender: FDA-Public Use
  Company Number: CHPA2010DE11567

PATIENT
  Sex: Male

DRUGS (1)
  1. NICOTINELL TTS (NCH) [Suspect]
     Indication: SMOKING CESSATION THERAPY
     Dosage: 30 MG, UNK
     Route: 062
     Dates: start: 20100610, end: 20100601

REACTIONS (3)
  - HALLUCINATION [None]
  - HEART RATE INCREASED [None]
  - NIGHTMARE [None]
